FAERS Safety Report 15565767 (Version 2)
Quarter: 2018Q4

REPORT INFORMATION
  Report Type: Report from Study
  Country: US (occurrence: US)
  Receive Date: 20181030
  Receipt Date: 20181116
  Transmission Date: 20190205
  Serious: No
  Sender: FDA-Public Use
  Company Number: PHEH2018US045104

PATIENT
  Sex: Male

DRUGS (1)
  1. ENTRESTO [Suspect]
     Active Substance: SACUBITRIL\VALSARTAN
     Indication: PRODUCT USED FOR UNKNOWN INDICATION
     Dosage: 50MG/KG BID
     Route: 048
     Dates: start: 20181017

REACTIONS (3)
  - Body temperature decreased [Recovering/Resolving]
  - Dizziness [Not Recovered/Not Resolved]
  - Chills [Recovering/Resolving]
